FAERS Safety Report 9216515 (Version 2)
Quarter: 2013Q2

REPORT INFORMATION
  Report Type: Spontaneous
  Country: US (occurrence: US)
  Receive Date: 20130408
  Receipt Date: 20130415
  Transmission Date: 20140414
  Serious: Yes (Hospitalization)
  Sender: FDA-Public Use
  Company Number: US-ABBOTT-13P-163-1073271-00

PATIENT
  Age: 4 Year
  Sex: Female

DRUGS (5)
  1. VALPROIC ACID [Suspect]
     Indication: COMPLEX PARTIAL SEIZURES
     Dosage: 60 MG/KG DAILY
  2. LACOSAMIDE [Interacting]
     Indication: COMPLEX PARTIAL SEIZURES
  3. LACOSAMIDE [Interacting]
     Route: 065
  4. CARBAMAZEPINE [Concomitant]
     Indication: PRODUCT USED FOR UNKNOWN INDICATION
  5. OXCARBAZEPINE [Concomitant]
     Indication: PRODUCT USED FOR UNKNOWN INDICATION

REACTIONS (20)
  - Toxicity to various agents [Recovered/Resolved]
  - Hyperammonaemic encephalopathy [Recovered/Resolved]
  - Drug interaction [Recovered/Resolved]
  - Decreased appetite [Unknown]
  - Dizziness [Unknown]
  - Gait disturbance [Unknown]
  - Somnolence [Unknown]
  - Pyrexia [Unknown]
  - Convulsion [Unknown]
  - Balance disorder [Unknown]
  - Depressed level of consciousness [Unknown]
  - Hypertonia [Unknown]
  - Reflexes abnormal [Unknown]
  - Extensor plantar response [Unknown]
  - Clonus [Unknown]
  - Mental status changes [Recovered/Resolved]
  - Bone marrow failure [Recovered/Resolved]
  - Leukopenia [Unknown]
  - Thrombocytopenia [Unknown]
  - Reticulocyte count decreased [Unknown]
